FAERS Safety Report 5581603-8 (Version None)
Quarter: 2008Q1

REPORT INFORMATION
  Report Type: 
  Country: None (occurrence: None)
  Receive Date: 20080103
  Receipt Date: 20080103
  Transmission Date: 20080703
  Serious: Yes (Hospitalization)
  Sender: FDA-Public Use
  Company Number: None

PATIENT
  Sex: Female
  Weight: 54.4316 kg

DRUGS (1)
  1. HEPARIN LOCK-FLUSH [Suspect]
     Indication: LOCALISED INFECTION
     Dosage: 5 ML IN 12 ML SYRINGE  1 X DAILY
     Dates: start: 20071112, end: 20071119

REACTIONS (11)
  - CENTRAL LINE INFECTION [None]
  - CHILLS [None]
  - COLITIS ISCHAEMIC [None]
  - INFECTION [None]
  - MALAISE [None]
  - PHARMACEUTICAL PRODUCT COMPLAINT [None]
  - POLLAKIURIA [None]
  - POOR QUALITY DRUG ADMINISTERED [None]
  - PYREXIA [None]
  - RASH GENERALISED [None]
  - THERAPEUTIC PRODUCT CONTAMINATION [None]
